FAERS Safety Report 6055118-7 (Version None)
Quarter: 2009Q1

REPORT INFORMATION
  Report Type: 
  Country: None (occurrence: None)
  Receive Date: 20090128
  Receipt Date: 20090122
  Transmission Date: 20090719
  Serious: Yes (Other)
  Sender: FDA-Public Use
  Company Number: GR-BRISTOL-MYERS SQUIBB COMPANY-14480446

PATIENT
  Age: 67 Year
  Sex: Male

DRUGS (5)
  1. CISPLATIN [Suspect]
  2. DOCETAXEL [Suspect]
  3. GRANULOCYTE CSF [Suspect]
  4. VINORELBINE [Suspect]
  5. TOPOTECAN [Suspect]

REACTIONS (1)
  - MULTIPLE MYELOMA [None]
